FAERS Safety Report 9064760 (Version 1)
Quarter: 2013Q1

REPORT INFORMATION
  Report Type: Spontaneous
  Country: CN (occurrence: CN)
  Receive Date: 20130130
  Receipt Date: 20130130
  Transmission Date: 20140127
  Serious: Yes (Other)
  Sender: FDA-Public Use
  Company Number: CN-ASTRAZENECA-2013SE04243

PATIENT
  Age: 86 Year
  Sex: Male

DRUGS (8)
  1. NEXIUM [Suspect]
     Indication: MELAENA
     Route: 048
     Dates: start: 2008
  2. IMDUR [Concomitant]
     Route: 048
  3. ASPIRIN [Concomitant]
     Route: 048
  4. PLAVIX [Concomitant]
     Route: 048
  5. NORVASC [Concomitant]
     Route: 048
  6. SIMVASTATIN [Concomitant]
     Route: 048
  7. ATORVASTATIN [Concomitant]
     Route: 048
  8. ANTIBIOTICS [Concomitant]
     Route: 048

REACTIONS (4)
  - Gastric haemorrhage [Recovered/Resolved]
  - Vomiting [Recovered/Resolved]
  - Abdominal discomfort [Unknown]
  - Intentional drug misuse [Recovered/Resolved]
